FAERS Safety Report 4752817-1 (Version None)
Quarter: 2005Q3

REPORT INFORMATION
  Report Type: 
  Country: None (occurrence: None)
  Receive Date: 20050823
  Receipt Date: 20041130
  Transmission Date: 20060218
  Serious: Yes (Hospitalization)
  Sender: FDA-Public Use
  Company Number: 2004100321

PATIENT
  Age: 66 Year
  Sex: Female
  Weight: 45.3597 kg

DRUGS (4)
  1. NORVASC [Suspect]
     Indication: ILL-DEFINED DISORDER
     Dosage: ORAL
     Route: 048
     Dates: start: 20040501, end: 20041101
  2. CALCIUM (CALCIUM [Concomitant]
  3. ACETYLSALICYLIC ACID SRT [Concomitant]
  4. MULTIVITAMINS (ASCORBIC ACID, ERGOCALCIFEROL, FOLIC ACID, NICOTINAMIDE [Concomitant]

REACTIONS (1)
  - MIGRAINE [None]
